FAERS Safety Report 6997014-4 (Version None)
Quarter: 2010Q3

REPORT INFORMATION
  Report Type: 
  Country: None (occurrence: None)
  Receive Date: 20100918
  Receipt Date: 20090831
  Transmission Date: 20110219
  Serious: No
  Sender: FDA-Public Use
  Company Number: US-WYE-H10774009

PATIENT
  Sex: Female
  Weight: 67.19 kg

DRUGS (3)
  1. PRISTIQ [Suspect]
     Indication: DEPRESSION
     Route: 048
     Dates: start: 20090711, end: 20090809
  2. PRISTIQ [Suspect]
     Route: 048
     Dates: start: 20090810
  3. CYMBALTA [Suspect]
     Dosage: UNKNOWN
     Dates: end: 20090801

REACTIONS (6)
  - ANORGASMIA [None]
  - CONTUSION [None]
  - CRYING [None]
  - DEPRESSED MOOD [None]
  - FLUID RETENTION [None]
  - PRURITUS [None]
